FAERS Safety Report 5066979-2 (Version None)
Quarter: 2006Q3

REPORT INFORMATION
  Report Type: 
  Country: None (occurrence: None)
  Receive Date: 20060726
  Receipt Date: 20060711
  Transmission Date: 20061208
  Serious: Yes (Death)
  Sender: FDA-Public Use
  Company Number: 2006US001297

PATIENT
  Age: 29 Year
  Sex: Male

DRUGS (2)
  1. PROGRAF [Suspect]
     Indication: PROPHYLAXIS AGAINST TRANSPLANT REJECTION
     Dosage: 6 MG, BID, ORAL
     Route: 048
     Dates: start: 20051217, end: 20060612
  2. PROGRAF [Suspect]
     Indication: PROPHYLAXIS AGAINST TRANSPLANT REJECTION
     Dosage: 6 MG, BID, ORAL
     Route: 048
     Dates: start: 20051025

REACTIONS (6)
  - ASPIRATION [None]
  - BLOOD GLUCOSE DECREASED [None]
  - HYPOGLYCAEMIC ENCEPHALOPATHY [None]
  - LOSS OF CONSCIOUSNESS [None]
  - RESPIRATORY ARREST [None]
  - VOMITING [None]
